FAERS Safety Report 6908491-9 (Version None)
Quarter: 2010Q3

REPORT INFORMATION
  Report Type: 
  Country: None (occurrence: None)
  Receive Date: 20100716
  Receipt Date: 20100316
  Transmission Date: 20110219
  Serious: Yes (Other)
  Sender: FDA-Public Use
  Company Number: 2010034396

PATIENT
  Sex: Female

DRUGS (2)
  1. CELEBREX [Suspect]
  2. LITHIUM CARBONATE [Suspect]

REACTIONS (2)
  - DRUG INTOLERANCE [None]
  - HYPERSENSITIVITY [None]
